FAERS Safety Report 8136295-0 (Version None)
Quarter: 2012Q1

REPORT INFORMATION
  Report Type: 
  Country: None (occurrence: None)
  Receive Date: 20120214
  Receipt Date: 20120203
  Transmission Date: 20120608
  Serious: Yes (Hospitalization, Other)
  Sender: FDA-Public Use
  Company Number: US-ELI_LILLY_AND_COMPANY-US201202001473

PATIENT
  Sex: Female

DRUGS (19)
  1. METOCLOPRAMIDE [Concomitant]
     Dosage: UNK, UNKNOWN
  2. ISOSORBIDE DINITRATE [Concomitant]
     Dosage: UNK, PRN
  3. NORCO [Concomitant]
     Dosage: UNK, UNKNOWN
  4. VITAMIN D [Concomitant]
     Dosage: UNK, UNKNOWN
  5. CYMBALTA [Concomitant]
     Indication: FIBROMYALGIA
     Dosage: 60 MG, QD
  6. MAXAIR MDI [Concomitant]
     Dosage: UNK, PRN
  7. NORVASC [Concomitant]
     Dosage: UNK, UNKNOWN
  8. PRAVASTATIN [Concomitant]
     Dosage: UNK, UNKNOWN
  9. PULMICORT-100 [Concomitant]
     Dosage: UNK, UNKNOWN
  10. LEVOTHYROXINE SODIUM [Concomitant]
     Dosage: UNK, UNKNOWN
  11. BENAZEPRIL HYDROCHLORIDE [Concomitant]
     Dosage: UNK, UNKNOWN
  12. ESTRADIOL [Concomitant]
     Dosage: UNK, UNKNOWN
  13. EFFIENT [Suspect]
     Indication: STENT PLACEMENT
     Dosage: 10 MG, QD
     Dates: end: 20111101
  14. WELLBUTRIN [Concomitant]
     Dosage: UNK, UNKNOWN
  15. ZYRTEC [Concomitant]
     Dosage: UNK, PRN
  16. FLUTICASON [Concomitant]
     Dosage: UNK, UNKNOWN
  17. MIRALAX [Concomitant]
     Dosage: UNK, UNKNOWN
  18. CLONIDINE [Concomitant]
     Dosage: UNK, UNKNOWN
  19. ASPIRIN [Concomitant]
     Dosage: 81 MG, UNKNOWN

REACTIONS (10)
  - GASTRIC ULCER [None]
  - INFLAMMATION [None]
  - DYSPNOEA [None]
  - ABDOMINAL PAIN UPPER [None]
  - CONTUSION [None]
  - CARDIAC DISORDER [None]
  - HYPERHIDROSIS [None]
  - GASTROINTESTINAL HAEMORRHAGE [None]
  - CHEST PAIN [None]
  - GASTROINTESTINAL INFECTION [None]
